FAERS Safety Report 6813982-5 (Version None)
Quarter: 2010Q3

REPORT INFORMATION
  Report Type: 
  Country: None (occurrence: None)
  Receive Date: 20100702
  Receipt Date: 20100623
  Transmission Date: 20110219
  Serious: Yes (Hospitalization)
  Sender: FDA-Public Use
  Company Number: BR-ASTRAZENECA-2010SE29818

PATIENT
  Age: 64 Year
  Sex: Male

DRUGS (3)
  1. ATACAND HCT [Suspect]
     Dosage: 16/12.5 MGS
     Route: 048
     Dates: start: 20070101
  2. BETALOR [Concomitant]
  3. ASPIRIN [Concomitant]

REACTIONS (2)
  - BLOOD CHOLESTEROL INCREASED [None]
  - VENOUS OCCLUSION [None]
